FAERS Safety Report 19289957 (Version 1)
Quarter: 2021Q2

REPORT INFORMATION
  Report Type: Spontaneous
  Country: HN (occurrence: HN)
  Receive Date: 20210522
  Receipt Date: 20210522
  Transmission Date: 20210717
  Serious: Yes (Other)
  Sender: FDA-Public Use
  Company Number: NVSC2021HN111078

PATIENT
  Sex: Male
  Weight: 77.1 kg

DRUGS (2)
  1. VYMADA [Suspect]
     Active Substance: SACUBITRIL\VALSARTAN
     Indication: CARDIAC DISORDER
  2. VYMADA [Suspect]
     Active Substance: SACUBITRIL\VALSARTAN
     Indication: HYPERTENSION
     Dosage: UNK, BID (ONE MONTH AND A HALF AGO,IN MORNING AND NIGHT)
     Route: 065

REACTIONS (2)
  - Joint effusion [Unknown]
  - Joint swelling [Unknown]
